FAERS Safety Report 6467969-5 (Version None)
Quarter: 2009Q4

REPORT INFORMATION
  Report Type: 
  Country: None (occurrence: None)
  Receive Date: 20091119
  Receipt Date: 20090806
  Transmission Date: 20100525
  Serious: No
  Sender: FDA-Public Use
  Company Number: WAES 0908USA00994

PATIENT
  Age: 81 Year
  Sex: Female

DRUGS (12)
  1. JANUVIA [Suspect]
     Indication: TYPE 2 DIABETES MELLITUS
     Dosage: 100 MG/DAILY/PO,50 MG/DAILY/PO
     Route: 048
     Dates: start: 20090506, end: 20090730
  2. JANUVIA [Suspect]
     Indication: TYPE 2 DIABETES MELLITUS
     Dosage: 100 MG/DAILY/PO,50 MG/DAILY/PO
     Route: 048
     Dates: start: 20090731
  3. ACTONEL [Concomitant]
  4. AVAPRO [Concomitant]
  5. TRAMACET [Concomitant]
  6. ASCORBIC ACID [Concomitant]
  7. ASPIRIN [Concomitant]
  8. BISOPROLOL [Concomitant]
  9. CALCIUM (UNSPECIFIED) [Concomitant]
  10. CYANOCOBALAMIN [Concomitant]
  11. GLIMEPIRIDE [Concomitant]
  12. INSULIN [Concomitant]

REACTIONS (2)
  - NASAL CONGESTION [None]
  - RHINORRHOEA [None]
